FAERS Safety Report 9298993 (Version 1)
Quarter: 2013Q2

REPORT INFORMATION
  Report Type: Spontaneous
  Country: US (occurrence: US)
  Receive Date: 20130520
  Receipt Date: 20130520
  Transmission Date: 20140414
  Serious: No
  Sender: FDA-Public Use
  Company Number: US-SANOFI-AVENTIS-2013SA038905

PATIENT
  Age: 50 Year
  Sex: Female

DRUGS (1)
  1. APIDRA [Suspect]
     Route: 058

REACTIONS (1)
  - Weight increased [Unknown]
